FAERS Safety Report 5471151-8 (Version None)
Quarter: 2007Q3

REPORT INFORMATION
  Report Type: 
  Country: None (occurrence: None)
  Receive Date: 20070928
  Receipt Date: 20070920
  Transmission Date: 20080115
  Serious: Yes (Other)
  Sender: FDA-Public Use
  Company Number: GB-ABBOTT-07P-167-0377854-00

PATIENT
  Sex: Male
  Weight: 98 kg

DRUGS (5)
  1. HUMIRA [Suspect]
     Indication: RHEUMATOID ARTHRITIS
     Route: 058
     Dates: start: 20051014, end: 20070425
  2. ETODOLAC [Concomitant]
     Indication: RHEUMATOID ARTHRITIS
     Route: 048
  3. DIHYDROCODEINE BITARTRATE INJ [Concomitant]
     Indication: ANALGESIA
     Route: 048
  4. AMITRIPTYLINE HCL [Concomitant]
     Indication: ANALGESIA
     Route: 048
  5. SALBUTAMOL [Concomitant]
     Indication: ASTHMA
     Route: 055

REACTIONS (2)
  - CUTANEOUS LUPUS ERYTHEMATOSUS [None]
  - LUPUS-LIKE SYNDROME [None]
